FAERS Safety Report 9665182 (Version 1)
Quarter: 2013Q4

REPORT INFORMATION
  Report Type: Report from Study
  Country: GB (occurrence: GB)
  Receive Date: 20131103
  Receipt Date: 20131103
  Transmission Date: 20140711
  Serious: Yes (Other)
  Sender: FDA-Public Use
  Company Number: GB-US-EMD SERONO, INC.-7246468

PATIENT
  Sex: Female

DRUGS (1)
  1. REBIF [Suspect]
     Indication: RELAPSING-REMITTING MULTIPLE SCLEROSIS
     Route: 058
     Dates: start: 20110413, end: 20131024

REACTIONS (4)
  - Lower respiratory tract infection [Unknown]
  - Injection site fibrosis [Unknown]
  - Injection site infection [Recovered/Resolved]
  - Wrong technique in drug usage process [Unknown]
